FAERS Safety Report 24585108 (Version 1)
Quarter: 2024Q4

REPORT INFORMATION
  Report Type: Spontaneous
  Country: HU (occurrence: HU)
  Receive Date: 20241106
  Receipt Date: 20241106
  Transmission Date: 20250114
  Serious: Yes (Life-Threatening, Other)
  Sender: AMGEN
  Company Number: None

PATIENT
  Sex: Female
  Weight: 63 kg

DRUGS (1)
  1. PROLIA [Suspect]
     Active Substance: DENOSUMAB
     Indication: Osteoporosis
     Dosage: 60 MILLIGRAM, Q6MO
     Route: 058
     Dates: start: 20180703, end: 20240130

REACTIONS (9)
  - Enteritis [Not Recovered/Not Resolved]
  - Actinomycosis [Unknown]
  - Abdominal pain [Unknown]
  - Chronic sinusitis [Not Recovered/Not Resolved]
  - Cystitis [Unknown]
  - Tooth disorder [Unknown]
  - Infection [Unknown]
  - Rhinalgia [Unknown]
  - Dysbiosis [Not Recovered/Not Resolved]

NARRATIVE: CASE EVENT DATE: 20190101
